FAERS Safety Report 8861256 (Version 1)
Quarter: 2012Q4

REPORT INFORMATION
  Report Type: 
  Country: US (occurrence: US)
  Receive Date: 20121026
  Receipt Date: 20121026
  Transmission Date: 20130627
  Serious: Yes (Other)
  Sender: FDA-Public Use
  Company Number: US-PFIZER INC-2012266715

PATIENT
  Age: 40 Year
  Sex: Male
  Weight: 88.44 kg

DRUGS (1)
  1. DIFLUCAN [Suspect]
     Indication: FUNGAL INFECTION
     Dosage: 100 mg, daily
     Dates: end: 201210

REACTIONS (1)
  - Electrocardiogram QT prolonged [Unknown]
